FAERS Safety Report 10175826 (Version 1)
Quarter: 2014Q2

REPORT INFORMATION
  Report Type: Spontaneous
  Country: BR (occurrence: BR)
  Receive Date: 20140516
  Receipt Date: 20140516
  Transmission Date: 20141212
  Serious: Yes (Other)
  Sender: FDA-Public Use
  Company Number: BR-ASTRAZENECA-2014SE32490

PATIENT
  Age: 90 Year
  Sex: Female

DRUGS (4)
  1. ATENOLOL [Suspect]
     Indication: HYPERTENSION
     Route: 048
     Dates: start: 2011
  2. GLIFAGE [Suspect]
     Indication: DIABETES MELLITUS
     Route: 048
     Dates: start: 2011
  3. ATACAND COMB [Suspect]
     Indication: HYPERTENSION
     Dosage: 16 MG/ 2.5 MG, DAILY
     Route: 048
     Dates: start: 20140420
  4. LOSARTAN [Concomitant]
     Indication: HYPERTENSION
     Route: 048
     Dates: start: 2011, end: 20140419

REACTIONS (3)
  - Blood pressure increased [Recovering/Resolving]
  - Pruritus [Recovering/Resolving]
  - Off label use [Not Recovered/Not Resolved]
